FAERS Safety Report 21520811 (Version 7)
Quarter: 2023Q2

REPORT INFORMATION
  Report Type: Spontaneous
  Country: US (occurrence: US)
  Receive Date: 20221028
  Receipt Date: 20230529
  Transmission Date: 20230721
  Serious: Yes (Hospitalization)
  Sender: FDA-Public Use
  Company Number: US-PFIZER INC-PV202200069323

PATIENT
  Age: 87 Year
  Sex: Male
  Weight: 65.76 kg

DRUGS (1)
  1. VYNDAMAX [Suspect]
     Active Substance: TAFAMIDIS
     Dosage: 61 MG

REACTIONS (4)
  - Constipation [Unknown]
  - Catheter removal [Unknown]
  - Product administration interrupted [Unknown]
  - Illness [Unknown]
